FAERS Safety Report 7961748-5 (Version None)
Quarter: 2011Q4

REPORT INFORMATION
  Report Type: 
  Country: None (occurrence: None)
  Receive Date: 20111202
  Receipt Date: 20111202
  Transmission Date: 20120403
  Serious: Yes (Other)
  Sender: FDA-Public Use
  Company Number: None

PATIENT
  Age: 68 Year
  Sex: Female
  Weight: 83.0083 kg

DRUGS (1)
  1. PRADAXA [Suspect]
     Indication: ATRIAL FIBRILLATION
     Dosage: 150 MG BID P.O
     Route: 048
     Dates: start: 20110711, end: 20110909

REACTIONS (4)
  - GASTROINTESTINAL HAEMORRHAGE [None]
  - ANAEMIA [None]
  - THYROID DISORDER [None]
  - FATIGUE [None]
